FAERS Safety Report 23772814 (Version 1)
Quarter: 2024Q2

REPORT INFORMATION
  Report Type: Report from Study
  Country: CA (occurrence: CA)
  Receive Date: 20240423
  Receipt Date: 20240423
  Transmission Date: 20240716
  Serious: Yes (Other)
  Sender: FDA-Public Use
  Company Number: CA-ABBVIE-5630706

PATIENT
  Age: 81 Year
  Sex: Female
  Weight: 50.7 kg

DRUGS (16)
  1. UPADACITINIB [Suspect]
     Active Substance: UPADACITINIB
     Indication: Dermatitis atopic
     Route: 048
     Dates: start: 20220713
  2. PROLIA [Concomitant]
     Active Substance: DENOSUMAB
     Indication: Prophylaxis
     Dosage: 60 MG / ML
     Route: 058
     Dates: start: 2016
  3. CALCIUM\VITAMIN D [Concomitant]
     Active Substance: CALCIUM\VITAMIN D
     Indication: Prophylaxis
     Dosage: 1 TABLET?500 MG + 1000 IU
     Route: 048
     Dates: start: 2007
  4. DEXILANT [Concomitant]
     Active Substance: DEXLANSOPRAZOLE
     Indication: Hiatus hernia
     Route: 048
     Dates: start: 2012
  5. LIPITOR [Concomitant]
     Active Substance: ATORVASTATIN CALCIUM
     Indication: Dyslipidaemia
     Route: 048
     Dates: start: 2007
  6. VITAMIN B12 [Concomitant]
     Active Substance: CYANOCOBALAMIN
     Indication: Anaemia
     Route: 048
     Dates: start: 201501
  7. OXAZEPAM [Concomitant]
     Active Substance: OXAZEPAM
     Indication: Insomnia
     Route: 048
     Dates: start: 2007
  8. NIFEDIPINE [Concomitant]
     Active Substance: NIFEDIPINE
     Indication: Hypertension
     Route: 048
     Dates: start: 1967, end: 20231101
  9. IRBESARTAN [Concomitant]
     Active Substance: IRBESARTAN
     Indication: Hypertension
     Route: 048
     Dates: start: 1967
  10. INDAPAMIDE [Concomitant]
     Active Substance: INDAPAMIDE
     Indication: Hypertension
     Route: 048
     Dates: start: 20220906
  11. TYLENOL [Concomitant]
     Active Substance: ACETAMINOPHEN
     Indication: Insomnia
     Dosage: TIME INTERVAL: AS NECESSARY: NIGHTIME?1 TABLET
     Route: 048
     Dates: start: 2021, end: 202403
  12. UREMOL [Concomitant]
     Active Substance: UREA
     Indication: Xerosis
     Dosage: TIME INTERVAL: AS NECESSARY: 20?1 APPLICATION
     Route: 061
     Dates: start: 20230529
  13. FUROSEMIDE [Concomitant]
     Active Substance: FUROSEMIDE
     Indication: Oedema peripheral
     Route: 048
     Dates: start: 20230816, end: 202311
  14. FUROSEMIDE [Concomitant]
     Active Substance: FUROSEMIDE
     Indication: Oedema peripheral
     Route: 048
     Dates: start: 202311
  15. AVEENO [Concomitant]
     Active Substance: DIMETHICONE\HOMOSALATE\OCTINOXATE\OCTISALATE\TITANIUM DIOXIDE
     Indication: Dermatitis atopic
     Dosage: MOISTURIZER CREAM WITH OAT FOR DRY SKIN, 1 APPLICATION
     Route: 061
     Dates: start: 20221024
  16. LIPIKAR BAUME AP+ [Concomitant]
     Indication: Dermatitis atopic
     Dosage: TIME INTERVAL: AS NECESSARY: 1 APPLICATION, MOISTURIZING
     Route: 061
     Dates: start: 20221102

REACTIONS (2)
  - Squamous cell breast carcinoma [Recovered/Resolved]
  - Dyspepsia [Not Recovered/Not Resolved]

NARRATIVE: CASE EVENT DATE: 20231101
